FAERS Safety Report 8824511 (Version 3)
Quarter: 2013Q3

REPORT INFORMATION
  Report Type: Report from Study
  Country: US (occurrence: US)
  Receive Date: 20121004
  Receipt Date: 20130715
  Transmission Date: 20140515
  Serious: Yes (Hospitalization)
  Sender: FDA-Public Use
  Company Number: US-BRISTOL-MYERS SQUIBB COMPANY-16992174

PATIENT
  Age: 50 Year
  Sex: Male

DRUGS (6)
  1. METFORMIN HCL [Suspect]
     Indication: TYPE 2 DIABETES MELLITUS
     Dates: start: 20120910, end: 201209
  2. LANTUS [Suspect]
     Indication: TYPE 2 DIABETES MELLITUS
     Dosage: 17NOV11-12JUN12:10IU/UNITS?13JUN12-ONG:25IU/UNITS
     Dates: start: 20111117
  3. PLACEBO [Suspect]
     Indication: TYPE 2 DIABETES MELLITUS
     Dosage: PATIENT STOPPED STUDY DRUG DUE TO NAUSEA AND HAS NOT RETURNED STUDY DRUG. NO CONTACT SINCE 16MAY12.
     Dates: start: 20110629
  4. ASPIRIN [Concomitant]
  5. SILVADENE [Concomitant]
     Dates: start: 20120725
  6. DICLOXACILLIN [Concomitant]
     Dates: start: 20120820

REACTIONS (3)
  - Bronchitis [Recovered/Resolved]
  - Lactic acidosis [Recovered/Resolved]
  - Renal failure acute [Recovered/Resolved]
